FAERS Safety Report 6459193-7 (Version None)
Quarter: 2009Q4

REPORT INFORMATION
  Report Type: 
  Country: None (occurrence: None)
  Receive Date: 20091127
  Receipt Date: 20090730
  Transmission Date: 20100525
  Serious: No
  Sender: FDA-Public Use
  Company Number: US-AMGEN-KDL355997

PATIENT
  Sex: Male
  Weight: 72 kg

DRUGS (5)
  1. ENBREL [Suspect]
     Indication: JUVENILE ARTHRITIS
     Route: 058
     Dates: start: 20090616
  2. METHOTREXATE [Concomitant]
     Route: 048
     Dates: start: 20080701
  3. ZOFRAN [Concomitant]
     Dates: start: 20081117
  4. DAYPRO [Concomitant]
     Dates: start: 20080428
  5. FOLIC ACID [Concomitant]
     Dates: start: 20080701

REACTIONS (1)
  - NAUSEA [None]
